FAERS Safety Report 6806051-1 (Version None)
Quarter: 2010Q2

REPORT INFORMATION
  Report Type: 
  Country: None (occurrence: None)
  Receive Date: 20100629
  Receipt Date: 20080630
  Transmission Date: 20101027
  Serious: No
  Sender: FDA-Public Use
  Company Number: US-PFIZER INC-2007077034

PATIENT
  Sex: Male
  Weight: 68 kg

DRUGS (10)
  1. VIAGRA [Suspect]
     Indication: ERECTILE DYSFUNCTION
  2. METFORMIN HCL [Concomitant]
     Indication: DIABETES MELLITUS
  3. LOPRESSOR [Concomitant]
     Indication: HYPERTENSION
  4. ENALAPRIL MALEATE [Concomitant]
     Indication: HYPERTENSION
  5. LEXXEL [Concomitant]
     Indication: HYPERTENSION
  6. INSULIN DETEMIR [Concomitant]
  7. ALLEGRA [Concomitant]
     Indication: SEASONAL ALLERGY
  8. ACETYLSALICYLIC ACID [Concomitant]
  9. VYTORIN [Concomitant]
     Indication: BLOOD CHOLESTEROL
  10. XANAX [Concomitant]
     Indication: ANXIETY

REACTIONS (6)
  - ABNORMAL DREAMS [None]
  - BLOOD GLUCOSE INCREASED [None]
  - ERECTILE DYSFUNCTION [None]
  - HYPOAESTHESIA [None]
  - OEDEMA PERIPHERAL [None]
  - PARAESTHESIA [None]
